FAERS Safety Report 13710331 (Version 1)
Quarter: 2017Q3

REPORT INFORMATION
  Report Type: Spontaneous
  Country: US (occurrence: US)
  Receive Date: 20170701
  Receipt Date: 20170701
  Transmission Date: 20171127
  Serious: Yes (Disabling, Other)
  Sender: FDA-Public Use
  Company Number: None

PATIENT
  Age: 44 Year
  Sex: Female
  Weight: 68.1 kg

DRUGS (3)
  1. MIRENA [Suspect]
     Active Substance: LEVONORGESTREL
     Dates: start: 20120731, end: 20170626
  2. PROBIOTICS [Concomitant]
     Active Substance: PROBIOTICS NOS
  3. ZYREC [Concomitant]

REACTIONS (8)
  - Dermatitis [None]
  - Hypersensitivity [None]
  - Drug ineffective [None]
  - Dermatitis contact [None]
  - Pruritus [None]
  - Rash generalised [None]
  - Tinea versicolour [None]
  - Rash [None]

NARRATIVE: CASE EVENT DATE: 20170401
